FAERS Safety Report 15643663 (Version 2)
Quarter: 2019Q1

REPORT INFORMATION
  Report Type: Spontaneous
  Country: US (occurrence: US)
  Receive Date: 20181121
  Receipt Date: 20190117
  Transmission Date: 20190417
  Serious: Yes (Other)
  Sender: FDA-Public Use
  Company Number: US-009507513-1811USA005682

PATIENT
  Age: 58 Year
  Sex: Male

DRUGS (10)
  1. KEYTRUDA [Suspect]
     Active Substance: PEMBROLIZUMAB
     Indication: HEAD AND NECK CANCER METASTATIC
     Dosage: 200 MILLIGRAM EVERY 21 DAYS
     Route: 042
     Dates: start: 20180517, end: 201811
  2. ERBITUX [Suspect]
     Active Substance: CETUXIMAB
     Dosage: UNK
  3. COMPAZINE [Concomitant]
     Active Substance: PROCHLORPERAZINE MALEATE
     Indication: NAUSEA
     Dosage: UNK
  4. ABRAXANE [Suspect]
     Active Substance: PACLITAXEL
     Dosage: UNK
  5. CYANOCOBALAMIN. [Concomitant]
     Active Substance: CYANOCOBALAMIN
     Dosage: UNK
  6. MORPHINE [Concomitant]
     Active Substance: MORPHINE
     Indication: PAIN
     Dosage: UNK
  7. KEYTRUDA [Suspect]
     Active Substance: PEMBROLIZUMAB
     Indication: METASTASES TO LUNG
  8. OXYCODONE [Concomitant]
     Active Substance: OXYCODONE
     Indication: PAIN
     Dosage: UNK
  9. DOXAZOSIN [Concomitant]
     Active Substance: DOXAZOSIN\DOXAZOSIN MESYLATE
     Indication: BENIGN PROSTATIC HYPERPLASIA
     Dosage: UNK
  10. TAXOL [Suspect]
     Active Substance: PACLITAXEL
     Dosage: UNK

REACTIONS (13)
  - Nausea [Unknown]
  - Epilepsy [Unknown]
  - Decreased appetite [Not Recovered/Not Resolved]
  - Vomiting [Unknown]
  - Stomatitis [Unknown]
  - Diarrhoea [Recovered/Resolved]
  - Urinary tract infection [Unknown]
  - Rash [Unknown]
  - Haemoptysis [Unknown]
  - Upper-airway cough syndrome [Unknown]
  - Fatigue [Unknown]
  - Malignant neoplasm progression [Unknown]
  - Epistaxis [Unknown]

NARRATIVE: CASE EVENT DATE: 2018
